FAERS Safety Report 24528172 (Version 3)
Quarter: 2025Q1

REPORT INFORMATION
  Report Type: Report from Study
  Country: US (occurrence: US)
  Receive Date: 20241021
  Receipt Date: 20250218
  Transmission Date: 20250409
  Serious: No
  Sender: SANDOZ
  Company Number: US-SANDOZ-SDZ2024US088161

PATIENT
  Age: 88 Year
  Sex: Female

DRUGS (2)
  1. CIMERLI [Suspect]
     Active Substance: RANIBIZUMAB-EQRN
     Dosage: 0.5 MG, QMO
     Dates: start: 20241016, end: 20241016
  2. CIMERLI [Suspect]
     Active Substance: RANIBIZUMAB-EQRN
     Indication: Product used for unknown indication
     Dosage: 00.05 MG/KG
     Dates: start: 20241016, end: 20241016

REACTIONS (2)
  - Circumstance or information capable of leading to medication error [Unknown]
  - Product contamination [Unknown]

NARRATIVE: CASE EVENT DATE: 20241016
